FAERS Safety Report 8710371 (Version 2)
Quarter: 2012Q4

REPORT INFORMATION
  Report Type: 
  Country: US (occurrence: US)
  Receive Date: 20120807
  Receipt Date: 20120917
  Transmission Date: 20130627
  Serious: No
  Sender: FDA-Public Use
  Company Number: US-009507513-1207USA004714

PATIENT

DRUGS (8)
  1. VICTRELIS [Suspect]
     Dosage: 800 mg, tid
     Route: 048
  2. PEGINTRON [Suspect]
     Dosage: 150 Microgram, UNK
     Route: 058
  3. PRILOSEC [Concomitant]
     Dosage: 20 mg, UNK
     Route: 048
  4. MULTI TABS [Concomitant]
  5. RIBAPAK [Concomitant]
     Dosage: 1200 per day
     Route: 048
  6. PROCRIT [Concomitant]
     Dosage: 40000 ml, UNK
     Route: 058
  7. VITAMIN B (UNSPECIFIED) [Concomitant]
     Dosage: 100 Microgram, UNK
     Route: 048
  8. PROBIOTICA [Concomitant]
     Route: 048

REACTIONS (4)
  - Chest discomfort [Unknown]
  - Dizziness [Unknown]
  - Dizziness [Unknown]
  - Nausea [Unknown]
